FAERS Safety Report 6427462-2 (Version None)
Quarter: 2009Q4

REPORT INFORMATION
  Report Type: 
  Country: None (occurrence: None)
  Receive Date: 20091104
  Receipt Date: 20091021
  Transmission Date: 20100525
  Serious: Yes (Hospitalization, Other)
  Sender: FDA-Public Use
  Company Number: PHHY2009ZA45940

PATIENT
  Age: 79 Year
  Sex: Male

DRUGS (7)
  1. TEGRETOL-XR [Suspect]
     Dosage: 1.5 DF, BID
  2. TEGRETOL-XR [Suspect]
     Dosage: 1.5 DF, BID
  3. BACLOFEN [Concomitant]
  4. SERLIFE [Concomitant]
  5. BISOPROLOL [Concomitant]
  6. SIMVASTATIN [Concomitant]
  7. ASPIRIN AND DIPYRIDAMOLE [Concomitant]

REACTIONS (8)
  - CEREBROVASCULAR ACCIDENT [None]
  - COGNITIVE DISORDER [None]
  - DIARRHOEA [None]
  - DISORIENTATION [None]
  - DRUG DISPENSING ERROR [None]
  - FATIGUE [None]
  - HALLUCINATION, VISUAL [None]
  - SOMNOLENCE [None]
